FAERS Safety Report 7080928-7 (Version None)
Quarter: 2010Q4

REPORT INFORMATION
  Report Type: 
  Country: None (occurrence: None)
  Receive Date: 20101102
  Receipt Date: 20101102
  Transmission Date: 20110411
  Serious: Yes (Other)
  Sender: FDA-Public Use
  Company Number: None

PATIENT
  Sex: Male

DRUGS (1)
  1. MULTIHANCE [Suspect]
     Indication: NUCLEAR MAGNETIC RESONANCE IMAGING
     Dosage: 20 ML IV POWER INJECTOR X 1 DOSE 1224-1225
     Route: 042
     Dates: start: 20101001

REACTIONS (4)
  - CONTRAST MEDIA REACTION [None]
  - ERYTHEMA [None]
  - PRURITUS [None]
  - RASH [None]
